FAERS Safety Report 8272474-X (Version None)
Quarter: 2012Q2

REPORT INFORMATION
  Report Type: 
  Country: None (occurrence: None)
  Receive Date: 20120410
  Receipt Date: 20120330
  Transmission Date: 20120825
  Serious: Yes (Death)
  Sender: FDA-Public Use
  Company Number: US-CELGENEUS-163-21880-12013039

PATIENT
  Sex: Female
  Weight: 68.1 kg

DRUGS (13)
  1. CYMBALTA [Concomitant]
     Indication: ANXIETY
  2. PREDNISONE TAB [Concomitant]
     Indication: ARTHRITIS
     Dosage: 20 MILLIGRAM
     Route: 048
     Dates: start: 20110123
  3. TYLENOL (CAPLET) [Concomitant]
     Dosage: 500 MILLIGRAM
     Route: 048
  4. REVLIMID [Suspect]
     Indication: MULTIPLE MYELOMA
     Dosage: 15 MILLIGRAM
     Dates: start: 20110316, end: 20120101
  5. LORTAB [Concomitant]
     Dosage: 7.5-500 MG
     Route: 048
     Dates: start: 20110321
  6. ASPIRIN [Concomitant]
     Dosage: 81 MILLIGRAM
     Route: 065
  7. COUMADIN [Concomitant]
     Indication: THROMBOSIS PROPHYLAXIS
     Dosage: 3 MILLIGRAM
     Route: 048
  8. MELOXICAM [Concomitant]
     Indication: ARTHRITIS
     Dosage: 7.5 MILLIGRAM
     Route: 048
     Dates: start: 20110211
  9. CYMBALTA [Concomitant]
     Indication: DEPRESSION
     Dosage: 60 MILLIGRAM
     Route: 048
     Dates: start: 20110211
  10. INDERAL LA [Concomitant]
     Indication: HYPERTENSION
     Dosage: 160 MILLIGRAM
     Route: 048
     Dates: start: 20110211
  11. PREVACID [Concomitant]
     Dosage: 15 MICROGRAM
     Route: 048
     Dates: start: 20110211
  12. LORAZEPAM [Concomitant]
     Indication: ANXIETY
     Dosage: .5 MILLIGRAM
     Route: 048
     Dates: start: 20110222
  13. LASIX [Concomitant]
     Dosage: 20 MILLIGRAM
     Route: 065
     Dates: start: 20110406

REACTIONS (1)
  - MULTIPLE MYELOMA [None]
